FAERS Safety Report 8126297-2 (Version None)
Quarter: 2012Q1

REPORT INFORMATION
  Report Type: 
  Country: None (occurrence: None)
  Receive Date: 20120209
  Receipt Date: 20120201
  Transmission Date: 20120608
  Serious: Yes (Other)
  Sender: FDA-Public Use
  Company Number: US-ASTRAZENECA-2011SE73528

PATIENT
  Age: 690 Month
  Sex: Female
  Weight: 83.9 kg

DRUGS (1)
  1. CRESTOR [Suspect]
     Route: 048

REACTIONS (3)
  - VENTRICULAR EXTRASYSTOLES [None]
  - SYNCOPE [None]
  - SUPRAVENTRICULAR TACHYCARDIA [None]
